FAERS Safety Report 5240842-6 (Version None)
Quarter: 2007Q1

REPORT INFORMATION
  Report Type: 
  Country: None (occurrence: None)
  Receive Date: 20061208
  Receipt Date: 20051102
  Transmission Date: 20070707
  Serious: Yes (Other)
  Sender: FDA-Public Use
  Company Number: 2005UW16615

PATIENT
  Age: 81 Year
  Sex: Male
  Weight: 81.646 kg

DRUGS (3)
  1. CRESTOR [Suspect]
     Indication: BLOOD CHOLESTEROL INCREASED
     Dosage: 10 MG PO
     Route: 048
  2. HYZAAR [Concomitant]
  3. ASPIRIN [Concomitant]

REACTIONS (2)
  - INSOMNIA [None]
  - NERVOUSNESS [None]
